FAERS Safety Report 5195748-8 (Version None)
Quarter: 2006Q4

REPORT INFORMATION
  Report Type: 
  Country: None (occurrence: None)
  Receive Date: 20061222
  Receipt Date: 20061222
  Transmission Date: 20070319
  Serious: No
  Sender: FDA-Public Use
  Company Number: None

PATIENT
  Age: 65 Year
  Sex: Female

DRUGS (6)
  1. MINOCYCLINE HCL [Suspect]
     Dates: start: 20050729, end: 20050825
  2. PREMARIN [Concomitant]
  3. ADVAIR DISKUS 100/50 [Concomitant]
  4. SINGULAIR [Concomitant]
  5. TIOTROPIUM [Concomitant]
  6. ALBUTEROL [Concomitant]

REACTIONS (11)
  - CHOLECYSTITIS [None]
  - CHOLELITHIASIS [None]
  - CHRONIC HEPATITIS [None]
  - CONSTIPATION [None]
  - DEHYDRATION [None]
  - DRUG INTOLERANCE [None]
  - HEPATIC CIRRHOSIS [None]
  - HEPATIC STEATOSIS [None]
  - HEPATIC TRAUMA [None]
  - HEPATOSPLENOMEGALY [None]
  - OEDEMA PERIPHERAL [None]
